FAERS Safety Report 13491294 (Version 1)
Quarter: 2017Q2

REPORT INFORMATION
  Report Type: Spontaneous
  Country: NL (occurrence: NL)
  Receive Date: 20170427
  Receipt Date: 20170427
  Transmission Date: 20170830
  Serious: Yes (Death, Hospitalization)
  Sender: FDA-Public Use
  Company Number: NL-BIOVITRUM-2017NL0420

PATIENT
  Age: 61 Year
  Sex: Male

DRUGS (1)
  1. KINERET [Suspect]
     Active Substance: ANAKINRA
     Indication: HISTIOCYTOSIS HAEMATOPHAGIC

REACTIONS (5)
  - Pancytopenia [Fatal]
  - Coma scale abnormal [Fatal]
  - Neutropenic sepsis [Fatal]
  - Pyrexia [Fatal]
  - Cerebral haemorrhage [Fatal]
